FAERS Safety Report 7542880-7 (Version None)
Quarter: 2011Q2

REPORT INFORMATION
  Report Type: 
  Country: None (occurrence: None)
  Receive Date: 20110613
  Receipt Date: 20110531
  Transmission Date: 20111010
  Serious: Yes (Other)
  Sender: FDA-Public Use
  Company Number: PHHY2010CA55734

PATIENT
  Sex: Female

DRUGS (2)
  1. ZOLEDRONIC ACID [Suspect]
     Indication: OSTEOPOROSIS
     Dosage: 5 MG
     Route: 042
     Dates: start: 20080428
  2. ZOLEDRONIC ACID [Suspect]
     Dosage: 5 MG
     Route: 042
     Dates: start: 20090602

REACTIONS (13)
  - HAEMORRHAGE [None]
  - JAW DISORDER [None]
  - OSTEONECROSIS OF JAW [None]
  - SWELLING [None]
  - BONE LESION [None]
  - BONE PAIN [None]
  - INFLUENZA LIKE ILLNESS [None]
  - INFECTION [None]
  - MYOSITIS [None]
  - BONE DISORDER [None]
  - HEARING IMPAIRED [None]
  - MASS [None]
  - OSTEOMYELITIS [None]
